FAERS Safety Report 8325355-7 (Version None)
Quarter: 2012Q2

REPORT INFORMATION
  Report Type: 
  Country: None (occurrence: None)
  Receive Date: 20120501
  Receipt Date: 20120423
  Transmission Date: 20120825
  Serious: No
  Sender: FDA-Public Use
  Company Number: US-JNJFOC-20120411309

PATIENT
  Sex: Female
  Weight: 59.88 kg

DRUGS (2)
  1. FENTANYL-100 [Suspect]
     Indication: SPINAL COLUMN INJURY
     Route: 062
     Dates: start: 20120420
  2. MULTIVITAMINES [Concomitant]
     Route: 048

REACTIONS (3)
  - PRODUCT QUALITY ISSUE [None]
  - HEADACHE [None]
  - WRONG TECHNIQUE IN DRUG USAGE PROCESS [None]
